FAERS Safety Report 5071794-X (Version None)
Quarter: 2006Q3

REPORT INFORMATION
  Report Type: 
  Country: None (occurrence: None)
  Receive Date: 20060804
  Receipt Date: 20060725
  Transmission Date: 20061208
  Serious: Yes (Other)
  Sender: FDA-Public Use
  Company Number: PHBS2006RU11285

PATIENT
  Age: 82 Year
  Sex: Female

DRUGS (2)
  1. MIACALCIN [Suspect]
     Indication: OSTEOPOROSIS
     Dosage: 200 IU/DAY
     Route: 045
  2. ALFA-D3-TEVA [Concomitant]
     Indication: OSTEOPOROSIS
     Dates: end: 20060601

REACTIONS (1)
  - SPINAL FRACTURE [None]
